FAERS Safety Report 5954842-1 (Version None)
Quarter: 2008Q4

REPORT INFORMATION
  Report Type: 
  Country: None (occurrence: None)
  Receive Date: 20081113
  Receipt Date: 20081113
  Transmission Date: 20090506
  Serious: Yes (Hospitalization)
  Sender: FDA-Public Use
  Company Number: None

PATIENT
  Age: 62 Year
  Sex: Male
  Weight: 71.2147 kg

DRUGS (1)
  1. TRUVADA [Suspect]
     Indication: HIV INFECTION
     Dosage: 1 TABLET DAILY PO
     Route: 048

REACTIONS (2)
  - FANCONI SYNDROME [None]
  - RENAL TUBULAR ACIDOSIS [None]
